FAERS Safety Report 22613406 (Version 1)
Quarter: 2023Q2

REPORT INFORMATION
  Report Type: Spontaneous
  Country: PT (occurrence: None)
  Receive Date: 20230619
  Receipt Date: 20230619
  Transmission Date: 20230722
  Serious: Yes (Other)
  Sender: FDA-Public Use
  Company Number: 2023A135566

PATIENT
  Age: 76 Year
  Sex: Male
  Weight: 87 kg

DRUGS (12)
  1. IMFINZI [Suspect]
     Active Substance: DURVALUMAB
     Indication: Squamous cell carcinoma of lung
     Route: 042
     Dates: start: 20230417
  2. SIMVASTATIN [Concomitant]
     Active Substance: SIMVASTATIN
  3. PREDNISOLONE [Concomitant]
     Active Substance: PREDNISOLONE
  4. XADAGO [Concomitant]
     Active Substance: SAFINAMIDE MESYLATE
  5. EPSICAPROM [Concomitant]
  6. CODIPRONT [Concomitant]
     Dosage: (SOS), STRENGTH 30 MG + 10 MG
  7. METFORMIN [Concomitant]
     Active Substance: METFORMIN HYDROCHLORIDE
  8. OMEPRAZOLE [Concomitant]
     Active Substance: OMEPRAZOLE
  9. LERCANADIPINE [Concomitant]
  10. BENSERAZIDE HYDROCHLORIDE\LEVODOPA [Concomitant]
     Active Substance: BENSERAZIDE HYDROCHLORIDE\LEVODOPA
     Dosage: 4 X/DAY, STRENGTH 200 MG + 50 MG
  11. INDERAL [Concomitant]
     Active Substance: PROPRANOLOL HYDROCHLORIDE
  12. INDAPAMIDE [Concomitant]
     Active Substance: INDAPAMIDE

REACTIONS (2)
  - Paraesthesia [Not Recovered/Not Resolved]
  - Gait disturbance [Not Recovered/Not Resolved]

NARRATIVE: CASE EVENT DATE: 20230515
